FAERS Safety Report 8333179-X (Version None)
Quarter: 2012Q1

REPORT INFORMATION
  Report Type: 
  Country: None (occurrence: None)
  Receive Date: 20120327
  Receipt Date: 20110512
  Transmission Date: 20120608
  Serious: Yes (Other)
  Sender: FDA-Public Use
  Company Number: PHHY2011US15691

PATIENT
  Age: 58 Year
  Sex: Female

DRUGS (1)
  1. GLEEVEC [Suspect]
     Dosage: 400 MG, DAILY, ORAL
     Route: 048
     Dates: start: 20110131

REACTIONS (1)
  - WHITE BLOOD CELL COUNT DECREASED [None]
